FAERS Safety Report 8004896-6 (Version None)
Quarter: 2011Q4

REPORT INFORMATION
  Report Type: 
  Country: None (occurrence: None)
  Receive Date: 20111223
  Receipt Date: 20110201
  Transmission Date: 20120403
  Serious: Yes (Hospitalization)
  Sender: FDA-Public Use
  Company Number: US-ASTRAZENECA-2011SE05887

PATIENT
  Age: 52 Year
  Sex: Female

DRUGS (4)
  1. TOPROL-XL [Suspect]
     Route: 048
  2. SEROQUEL XR [Suspect]
     Route: 048
  3. NEXIUM [Suspect]
     Route: 048
  4. CRESTOR [Suspect]
     Route: 048

REACTIONS (3)
  - HOSPITALISATION [None]
  - PAIN IN EXTREMITY [None]
  - ARTHRALGIA [None]
